FAERS Safety Report 19987015 (Version 3)
Quarter: 2022Q1

REPORT INFORMATION
  Report Type: Report from Study
  Country: HN (occurrence: HN)
  Receive Date: 20211023
  Receipt Date: 20220212
  Transmission Date: 20220423
  Serious: Yes (Other)
  Sender: FDA-Public Use
  Company Number: HN-NOVARTISPH-NVSC2021HN237240

PATIENT
  Sex: Female

DRUGS (4)
  1. HYDROCHLOROTHIAZIDE\VALSARTAN [Suspect]
     Active Substance: HYDROCHLOROTHIAZIDE\VALSARTAN
     Indication: Blood pressure increased
     Dosage: 320/25 MG, QD
     Route: 048
     Dates: start: 202001, end: 202106
  2. HYDROCHLOROTHIAZIDE\VALSARTAN [Suspect]
     Active Substance: HYDROCHLOROTHIAZIDE\VALSARTAN
     Dosage: UNK, 320/12.5MG
     Route: 065
     Dates: start: 20210531
  3. HYDROCHLOROTHIAZIDE\VALSARTAN [Suspect]
     Active Substance: HYDROCHLOROTHIAZIDE\VALSARTAN
     Dosage: UNK, 320/12.5MG
     Route: 065
     Dates: start: 202106
  4. GLIMEPIRIDE\METFORMIN [Concomitant]
     Active Substance: GLIMEPIRIDE\METFORMIN
     Indication: Diabetes mellitus
     Dosage: 2/500 MG, BID
     Route: 048

REACTIONS (9)
  - Blood pressure increased [Unknown]
  - Diabetes mellitus inadequate control [Unknown]
  - Stress [Unknown]
  - Fall [Unknown]
  - Feeling abnormal [Unknown]
  - Abdominal discomfort [Unknown]
  - Anxiety [Unknown]
  - Nervousness [Unknown]
  - Headache [Unknown]
